FAERS Safety Report 5787767-5 (Version None)
Quarter: 2008Q2

REPORT INFORMATION
  Report Type: 
  Country: None (occurrence: None)
  Receive Date: 20080624
  Receipt Date: 20080624
  Transmission Date: 20081010
  Serious: Yes (Hospitalization)
  Sender: FDA-Public Use
  Company Number: None

PATIENT
  Sex: Male
  Weight: 89.2679 kg

DRUGS (6)
  1. TORISEL [Suspect]
     Indication: METASTATIC RENAL CELL CARCINOMA
     Dosage: 25 MG WEEKLY IV DRIP
     Route: 041
     Dates: start: 20080410, end: 20080619
  2. BENICAR [Concomitant]
  3. NORVASC [Concomitant]
  4. COMPAZINE [Concomitant]
  5. BENADRYL [Concomitant]
  6. ZOFRAN [Concomitant]

REACTIONS (1)
  - RENAL FAILURE ACUTE [None]
